FAERS Safety Report 25753098 (Version 1)
Quarter: 2025Q3

REPORT INFORMATION
  Report Type: Report from Study
  Country: CA (occurrence: CA)
  Receive Date: 20250902
  Receipt Date: 20250902
  Transmission Date: 20251020
  Serious: Yes (Hospitalization)
  Sender: ABBVIE
  Company Number: CA-ABBVIE-6440385

PATIENT
  Sex: Female

DRUGS (1)
  1. RINVOQ [Suspect]
     Active Substance: UPADACITINIB
     Indication: Rheumatoid arthritis
     Route: 048

REACTIONS (6)
  - Cardiac failure congestive [Unknown]
  - Dyspnoea [Unknown]
  - Arthritis [Unknown]
  - Synovitis [Unknown]
  - Pneumonia [Unknown]
  - Left ventricular dysfunction [Unknown]
